FAERS Safety Report 16031091 (Version 1)
Quarter: 2019Q1

REPORT INFORMATION
  Report Type: Spontaneous
  Country: US (occurrence: US)
  Receive Date: 20190304
  Receipt Date: 20190304
  Transmission Date: 20190418
  Serious: Yes (Hospitalization, Other)
  Sender: FDA-Public Use
  Company Number: US-BAYER-2019-044710

PATIENT
  Age: 75 Year
  Sex: Male
  Weight: 61.3 kg

DRUGS (23)
  1. ACETYLSALICYLIC ACID (CARDIO) [Suspect]
     Active Substance: ASPIRIN
     Dosage: 100 MG, QD
     Route: 048
     Dates: start: 20180824, end: 20190204
  2. COCARL [Concomitant]
     Active Substance: ACETAMINOPHEN
     Dosage: UNK
     Dates: start: 20190128, end: 20190228
  3. ACINON [NIZATIDINE] [Concomitant]
     Dosage: UNK
     Dates: start: 20180828
  4. METHYCOBAL [Concomitant]
     Active Substance: METHYLCOBALAMIN
     Dosage: UNK
     Dates: start: 20181119
  5. LEVOTHYROXINE. [Concomitant]
     Active Substance: LEVOTHYROXINE
     Dosage: UNK
     Dates: start: 20180821
  6. NOVORAPID [Concomitant]
     Active Substance: INSULIN ASPART
     Dosage: UNK
     Dates: start: 20180406
  7. MYSER [DIFLUPREDNATE] [Concomitant]
  8. CORTRIL [HYDROCORTISONE] [Concomitant]
     Dosage: UNK
     Dates: start: 20180821
  9. OLMETEC [Concomitant]
     Active Substance: OLMESARTAN MEDOXOMIL
     Dosage: UNK
     Dates: start: 20181029
  10. NORVASC [Concomitant]
     Active Substance: AMLODIPINE BESYLATE
     Dosage: UNK
     Dates: start: 20181029
  11. URSO MITSUBISHI [Concomitant]
     Dosage: UNK
     Dates: start: 20180824
  12. ISOSORBIDE MONONITRATE. [Concomitant]
     Active Substance: ISOSORBIDE MONONITRATE
     Dosage: UNK
     Dates: start: 20180821
  13. AXITINIB [Concomitant]
     Active Substance: AXITINIB
     Indication: HEPATOCELLULAR CARCINOMA
     Dosage: 5 MG, BID
  14. MIYA-BM [Concomitant]
     Active Substance: CLOSTRIDIUM BUTYRICUM SPORES STRAIN M-55
     Dosage: UNK
     Dates: start: 20180910
  15. ROSUVASTATIN. [Concomitant]
     Active Substance: ROSUVASTATIN
     Dosage: UNK
     Dates: start: 20180821
  16. KERATINAMIN [UREA] [Concomitant]
     Dosage: UNK
  17. AMINOLEBAN [Concomitant]
     Active Substance: AMINO ACIDS
     Dosage: UNK
     Dates: start: 20181203
  18. AVELUMAB [Concomitant]
     Active Substance: AVELUMAB
     Indication: HEPATOCELLULAR CARCINOMA
     Dosage: 664 MG CYCLIC
  19. THYRADIN-S [Concomitant]
     Active Substance: LEVOTHYROXINE
     Dosage: UNK
     Dates: start: 20190121
  20. RESTAMIN KOWA [Concomitant]
     Dosage: UNK
     Dates: start: 20190128, end: 20190128
  21. ESOMEPRAZOLE. [Concomitant]
     Active Substance: ESOMEPRAZOLE MAGNESIUM
     Dosage: UNK
     Dates: start: 20180821
  22. PROMAC D [Concomitant]
     Active Substance: POLAPREZINC
     Dosage: UNK
     Dates: start: 20180910
  23. URIEF [Concomitant]
     Active Substance: SILODOSIN
     Dosage: UNK
     Dates: start: 20180824

REACTIONS (1)
  - Diverticulum intestinal haemorrhagic [Recovered/Resolved]

NARRATIVE: CASE EVENT DATE: 20190204
